FAERS Safety Report 24842981 (Version 4)
Quarter: 2025Q1

REPORT INFORMATION
  Report Type: Spontaneous
  Country: BR (occurrence: BR)
  Receive Date: 20250115
  Receipt Date: 20250311
  Transmission Date: 20250409
  Serious: Yes (Other)
  Sender: NOVO NORDISK
  Company Number: BR-NOVOPROD-1348284

PATIENT
  Age: 990 Month
  Sex: Female

DRUGS (1)
  1. TRESIBA [Suspect]
     Active Substance: INSULIN DEGLUDEC
     Indication: Product used for unknown indication

REACTIONS (5)
  - Hyperglycaemia [Recovered/Resolved]
  - Device loosening [Unknown]
  - Device failure [Unknown]
  - Incorrect dose administered by device [Unknown]
  - Product packaging issue [Unknown]
